FAERS Safety Report 20742390 (Version 1)
Quarter: 2022Q2

REPORT INFORMATION
  Report Type: Spontaneous
  Country: NL (occurrence: NL)
  Receive Date: 20220424
  Receipt Date: 20220424
  Transmission Date: 20220721
  Serious: Yes (Other)
  Sender: FDA-Public Use
  Company Number: None

PATIENT
  Sex: Female
  Weight: 60 kg

DRUGS (2)
  1. FLUTICASONE [Suspect]
     Active Substance: FLUTICASONE
     Indication: Asthma
     Dosage: SHORT PERIODS OF DAY. 2X. LONGER PERIODS 2X /WK, AEROSOL 250UG/DO / BRAND NAME NOT SPECIFIED, UNIT D
     Route: 065
     Dates: start: 2021, end: 20220316
  2. VENTOLIN [Concomitant]
     Active Substance: ALBUTEROL SULFATE
     Dosage: UNIT STRENGTH: 200 MICROGRAM,200UG/DO / VENTOLIN DISKUS INHPDR 200MCG 60DO, THERAPY START DATE :  AS

REACTIONS (6)
  - Suicidal ideation [Recovered/Resolved]
  - Restlessness [Recovered/Resolved]
  - Agitation [Recovered/Resolved]
  - Depressed mood [Recovered/Resolved]
  - Stress [Recovered/Resolved]
  - Mood swings [Recovered/Resolved]
